FAERS Safety Report 7115763-4 (Version None)
Quarter: 2010Q4

REPORT INFORMATION
  Report Type: 
  Country: None (occurrence: None)
  Receive Date: 20101122
  Receipt Date: 20101111
  Transmission Date: 20110411
  Serious: Yes (Hospitalization)
  Sender: FDA-Public Use
  Company Number: US-JNJFOC-20101104455

PATIENT
  Sex: Female
  Weight: 82.99 kg

DRUGS (8)
  1. RISPERIDONE [Suspect]
     Indication: SCHIZOPHRENIA
     Route: 048
  2. RISPERIDONE [Suspect]
     Route: 048
  3. RISPERIDONE [Suspect]
     Route: 048
  4. RISPERIDONE [Suspect]
     Route: 048
  5. PROZAC [Suspect]
     Indication: DEPRESSION
     Route: 065
  6. LORAZEPAM [Suspect]
     Indication: ANXIETY
     Route: 065
  7. CIPROFLOXACIN HYDROCHLORIDE [Concomitant]
     Route: 065
  8. ORTHO CYCLEN-28 [Concomitant]
     Route: 065

REACTIONS (9)
  - ANXIETY [None]
  - BLOOD URINE [None]
  - DEPRESSION [None]
  - HAEMOGLOBIN DECREASED [None]
  - MEAN CELL VOLUME DECREASED [None]
  - PROTEIN URINE [None]
  - SELF INJURIOUS BEHAVIOUR [None]
  - SUICIDAL IDEATION [None]
  - URINE LEUKOCYTE ESTERASE [None]
